FAERS Safety Report 18292109 (Version 1)
Quarter: 2020Q3

REPORT INFORMATION
  Report Type: Spontaneous
  Country: GB (occurrence: GB)
  Receive Date: 20200922
  Receipt Date: 20200922
  Transmission Date: 20201103
  Serious: Yes (Other)
  Sender: FDA-Public Use
  Company Number: GB-TEVA-2020-GB-1828745

PATIENT
  Age: 57 Year
  Sex: Male

DRUGS (7)
  1. BISOPROLOL FUMARATE. [Concomitant]
     Active Substance: BISOPROLOL FUMARATE
  2. ACETYLSALICYLIC ACID [Concomitant]
     Active Substance: ASPIRIN
  3. EPLERENONE. [Concomitant]
     Active Substance: EPLERENONE
  4. ATORVASTATIN [Concomitant]
     Active Substance: ATORVASTATIN
  5. RAMIPRIL. [Concomitant]
     Active Substance: RAMIPRIL
  6. PARACETAMOL [Concomitant]
     Active Substance: ACETAMINOPHEN
  7. NITROFURANTOIN. [Suspect]
     Active Substance: NITROFURANTOIN
     Indication: URINARY TRACT INFECTION
     Dosage: 200 MG
     Route: 048
     Dates: start: 20200818, end: 20200819

REACTIONS (2)
  - Nightmare [Unknown]
  - Hallucination [Unknown]

NARRATIVE: CASE EVENT DATE: 20200818
